FAERS Safety Report 22943858 (Version 2)
Quarter: 2024Q2

REPORT INFORMATION
  Report Type: Report from Study
  Country: RU (occurrence: RU)
  Receive Date: 20230914
  Receipt Date: 20240528
  Transmission Date: 20240716
  Serious: No
  Sender: FDA-Public Use
  Company Number: RU-Merck Healthcare KGaA-2023474334

PATIENT
  Age: 57 Year
  Sex: Female

DRUGS (8)
  1. BAVENCIO [Suspect]
     Active Substance: AVELUMAB
     Indication: Renal cell carcinoma
     Dates: start: 20220527
  2. BAVENCIO [Suspect]
     Active Substance: AVELUMAB
     Dates: start: 20220930
  3. INLYTA [Suspect]
     Active Substance: AXITINIB
     Indication: Renal cell carcinoma
     Dosage: UNKNOWN THERAPY DETAILS
  4. INLYTA [Suspect]
     Active Substance: AXITINIB
     Dates: start: 20220909, end: 20220929
  5. INLYTA [Suspect]
     Active Substance: AXITINIB
     Dosage: UNKNOWN THERAPY DETAILS
  6. DEXTRIFERRON [Concomitant]
     Active Substance: DEXTRIFERRON
     Indication: Anaemia
     Route: 048
     Dates: start: 20220305
  7. TRAMADOL [Concomitant]
     Active Substance: TRAMADOL\TRAMADOL HYDROCHLORIDE
     Indication: Pain
     Route: 030
     Dates: start: 20220919
  8. RABEPRAZOLE [Concomitant]
     Active Substance: RABEPRAZOLE
     Indication: Prophylaxis
     Route: 042
     Dates: start: 20220919

REACTIONS (1)
  - Eastern Cooperative Oncology Group performance status worsened [Not Recovered/Not Resolved]

NARRATIVE: CASE EVENT DATE: 20221003
